FAERS Safety Report 8222437-5 (Version None)
Quarter: 2012Q1

REPORT INFORMATION
  Report Type: 
  Country: None (occurrence: None)
  Receive Date: 20120320
  Receipt Date: 20120308
  Transmission Date: 20120608
  Serious: Yes (Other)
  Sender: FDA-Public Use
  Company Number: US-ELI_LILLY_AND_COMPANY-US201203003327

PATIENT
  Sex: Male

DRUGS (3)
  1. HUMULIN N [Suspect]
  2. HUMULIN 70/30 [Suspect]
  3. HUMULIN 70/30 [Suspect]

REACTIONS (4)
  - DRUG INEFFECTIVE [None]
  - FEELING ABNORMAL [None]
  - BLOOD GLUCOSE ABNORMAL [None]
  - SUICIDAL IDEATION [None]
